FAERS Safety Report 7980056-X (Version None)
Quarter: 2011Q4

REPORT INFORMATION
  Report Type: 
  Country: None (occurrence: None)
  Receive Date: 20111214
  Receipt Date: 20111128
  Transmission Date: 20120403
  Serious: No
  Sender: FDA-Public Use
  Company Number: US-ROXANE LABORATORIES, INC.-2011-RO-01715RO

PATIENT
  Sex: Male

DRUGS (3)
  1. PREDNISONE TAB [Suspect]
     Dosage: 30 MG
     Route: 048
  2. SABRIL [Suspect]
     Indication: INFANTILE SPASMS
  3. SABRIL [Suspect]
     Indication: EPILEPSY
     Dosage: 1000 MG
     Route: 048
     Dates: start: 20110901

REACTIONS (1)
  - ABDOMINAL PAIN UPPER [None]
